FAERS Safety Report 10774650 (Version 1)
Quarter: 2015Q1

REPORT INFORMATION
  Report Type: Report from Study
  Country: US (occurrence: US)
  Receive Date: 20150209
  Receipt Date: 20150209
  Transmission Date: 20150721
  Serious: Yes (Hospitalization, Other)
  Sender: FDA-Public Use
  Company Number: US-AMGEN-USASL2015010981

PATIENT
  Age: 63 Year
  Sex: Female

DRUGS (1)
  1. ENBREL [Suspect]
     Active Substance: ETANERCEPT
     Indication: RHEUMATOID ARTHRITIS
     Dosage: 50 MG, QWK
     Route: 058

REACTIONS (9)
  - Meniscus injury [Unknown]
  - Injection site pain [Recovered/Resolved]
  - Fall [Unknown]
  - Dysstasia [Unknown]
  - Drug effect decreased [Not Recovered/Not Resolved]
  - Surgery [Unknown]
  - Limb discomfort [Unknown]
  - Neuropathy peripheral [Unknown]
  - Influenza [Unknown]

NARRATIVE: CASE EVENT DATE: 2014
